FAERS Safety Report 6669800-1 (Version None)
Quarter: 2010Q2

REPORT INFORMATION
  Report Type: 
  Country: None (occurrence: None)
  Receive Date: 20100402
  Receipt Date: 20100324
  Transmission Date: 20101027
  Serious: Yes (Other)
  Sender: FDA-Public Use
  Company Number: 009248

PATIENT
  Age: 90 Year
  Sex: Female

DRUGS (1)
  1. SAMSCA [Suspect]
     Indication: HYPONATRAEMIA
     Dosage: 15 MG, ORAL
     Route: 048
     Dates: start: 20100320

REACTIONS (7)
  - CATHETER SITE INFECTION [None]
  - HYPOTENSION [None]
  - INCONTINENCE [None]
  - NAUSEA [None]
  - POLLAKIURIA [None]
  - PROTEUS INFECTION [None]
  - THIRST [None]
